FAERS Safety Report 9484568 (Version 2)
Quarter: 2013Q3

REPORT INFORMATION
  Report Type: Spontaneous
  Country: CA (occurrence: CA)
  Receive Date: 20130828
  Receipt Date: 20130828
  Transmission Date: 20140515
  Serious: Yes (Death, Hospitalization)
  Sender: FDA-Public Use
  Company Number: CA-AMGEN-KDL291631

PATIENT
  Age: 53 Year
  Sex: Male
  Weight: 86.3 kg

DRUGS (8)
  1. ENBREL [Suspect]
     Indication: PSORIATIC ARTHROPATHY
     Dosage: UNK UNK, QWK
     Route: 058
     Dates: start: 20050512
  2. METHOTREXATE [Concomitant]
     Dosage: UNK UNK, UNK
  3. PREDNISONE [Concomitant]
     Dosage: UNK UNK, UNK
  4. MELOXICAM [Concomitant]
  5. FOLIC ACID [Concomitant]
  6. PANTOPRAZOLE [Concomitant]
  7. LORSARTAN POTASSIUM HYDROCHLORIDE [Concomitant]
  8. ACETYLSALICYLIC ACID [Concomitant]
     Dosage: 81 MG, UNK

REACTIONS (3)
  - Death [Fatal]
  - Intervertebral disc protrusion [Unknown]
  - Colectomy [Unknown]
